FAERS Safety Report 24449004 (Version 1)
Quarter: 2024Q4

REPORT INFORMATION
  Report Type: Spontaneous
  Country: US (occurrence: US)
  Receive Date: 20241017
  Receipt Date: 20241017
  Transmission Date: 20250114
  Serious: No
  Sender: PADAGIS
  Company Number: US-PADAGIS-2024PAD01604

PATIENT

DRUGS (1)
  1. DEXAMETHASONE\TOBRAMYCIN [Suspect]
     Active Substance: DEXAMETHASONE\TOBRAMYCIN
     Indication: Ear infection
     Dosage: UNK
     Route: 001

REACTIONS (4)
  - Chapped lips [Unknown]
  - Glossodynia [Unknown]
  - Incorrect route of product administration [Unknown]
  - Product use in unapproved indication [Unknown]
